FAERS Safety Report 13245608 (Version 1)
Quarter: 2017Q1

REPORT INFORMATION
  Report Type: Spontaneous
  Country: US (occurrence: US)
  Receive Date: 20170217
  Receipt Date: 20170217
  Transmission Date: 20170428
  Serious: Yes (Other)
  Sender: FDA-Public Use
  Company Number: US-VIVUS-2017V1000027

PATIENT
  Age: 32 Year
  Sex: Female
  Weight: 80.36 kg

DRUGS (2)
  1. QSYMIA [Suspect]
     Active Substance: PHENTERMINE HYDROCHLORIDE\TOPIRAMATE
     Indication: WEIGHT DECREASED
     Route: 048
     Dates: start: 201605
  2. QSYMIA [Suspect]
     Active Substance: PHENTERMINE HYDROCHLORIDE\TOPIRAMATE
     Indication: WEIGHT DECREASED
     Route: 048
     Dates: start: 20160418, end: 201605

REACTIONS (8)
  - Mobility decreased [Not Recovered/Not Resolved]
  - Radiculopathy [Not Recovered/Not Resolved]
  - Contusion [Recovering/Resolving]
  - Muscle injury [Recovering/Resolving]
  - Muscle spasms [Not Recovered/Not Resolved]
  - Concussion [Not Recovered/Not Resolved]
  - Road traffic accident [Recovered/Resolved]
  - Pain [Not Recovered/Not Resolved]

NARRATIVE: CASE EVENT DATE: 20161209
